FAERS Safety Report 17981181 (Version 4)
Quarter: 2020Q4

REPORT INFORMATION
  Report Type: Spontaneous
  Country: US (occurrence: US)
  Receive Date: 20200705
  Receipt Date: 20201019
  Transmission Date: 20210113
  Serious: Yes (Other)
  Sender: FDA-Public Use
  Company Number: US-AKCEA THERAPEUTICS-2020IS001187

PATIENT
  Age: 74 Year
  Sex: Male
  Weight: 73.18 kg

DRUGS (43)
  1. ELIQUIS [Concomitant]
     Active Substance: APIXABAN
     Route: 065
  2. PROTONIX /00661201/ [Concomitant]
     Active Substance: OMEPRAZOLE
  3. PROTONIX /00661201/ [Concomitant]
     Active Substance: OMEPRAZOLE
  4. ASPIRIN. [Concomitant]
     Active Substance: ASPIRIN
     Route: 065
  5. UREA. [Concomitant]
     Active Substance: UREA
     Route: 065
  6. IRON SULFATE [Concomitant]
     Active Substance: FERROUS SULFATE ANHYDROUS
     Route: 065
  7. MILK OF MAGNESIA [Concomitant]
     Active Substance: MAGNESIUM HYDROXIDE
     Route: 065
  8. SPIRONOLACTONE. [Concomitant]
     Active Substance: SPIRONOLACTONE
     Route: 065
  9. CARVEDILOL. [Concomitant]
     Active Substance: CARVEDILOL
     Route: 065
  10. IMODIUM [Concomitant]
     Active Substance: LOPERAMIDE HYDROCHLORIDE
     Route: 065
  11. METOLAZONE. [Concomitant]
     Active Substance: METOLAZONE
     Route: 048
  12. ISSD (INTEGRATED SYRINGE SAFETY DEVICE) [Suspect]
     Active Substance: DEVICE
  13. ATORVASTATIN [Concomitant]
     Active Substance: ATORVASTATIN
     Route: 065
  14. BISACODYL. [Concomitant]
     Active Substance: BISACODYL
     Route: 065
  15. TEGSEDI [Suspect]
     Active Substance: INOTERSEN SODIUM
     Route: 058
     Dates: start: 20200517, end: 20200520
  16. SENNA /00142201/ [Concomitant]
     Active Substance: SENNA LEAF
     Route: 065
  17. PHOSPHO-SODA [Concomitant]
     Active Substance: SODIUM PHOSPHATE, DIBASIC\SODIUM PHOSPHATE, MONOBASIC
     Route: 065
  18. FLEXERIL [Concomitant]
     Active Substance: CYCLOBENZAPRINE HYDROCHLORIDE
     Route: 065
  19. TEGSEDI [Suspect]
     Active Substance: INOTERSEN SODIUM
     Route: 058
     Dates: start: 20200510, end: 20200513
  20. TEGSEDI [Suspect]
     Active Substance: INOTERSEN SODIUM
     Dates: end: 20200928
  21. TAPAZOLE [Concomitant]
     Active Substance: METHIMAZOLE
     Route: 065
  22. ISOSORBIDE DINITRATE. [Concomitant]
     Active Substance: ISOSORBIDE DINITRATE
     Route: 065
  23. DIGOXIN. [Concomitant]
     Active Substance: DIGOXIN
     Route: 065
  24. TYLENOL [Concomitant]
     Active Substance: ACETAMINOPHEN
     Route: 065
  25. TYLENOL [Concomitant]
     Active Substance: ACETAMINOPHEN
     Route: 065
  26. SOMA [Concomitant]
     Active Substance: CARISOPRODOL
     Route: 065
  27. PROTONIX /00661201/ [Concomitant]
     Active Substance: OMEPRAZOLE
     Route: 065
  28. SENNA /00142201/ [Concomitant]
     Active Substance: SENNA LEAF
     Route: 065
  29. ALLOPURINOL. [Concomitant]
     Active Substance: ALLOPURINOL
     Route: 065
  30. ZOFRAN [Concomitant]
     Active Substance: ONDANSETRON HYDROCHLORIDE
     Route: 065
  31. METHIMAZOLE. [Concomitant]
     Active Substance: METHIMAZOLE
     Route: 065
  32. TEGSEDI [Suspect]
     Active Substance: INOTERSEN SODIUM
     Indication: HEREDITARY NEUROPATHIC AMYLOIDOSIS
     Route: 058
  33. ULTRAM [Concomitant]
     Active Substance: TRAMADOL HYDROCHLORIDE
     Route: 065
  34. LIDOCAINE. [Concomitant]
     Active Substance: LIDOCAINE
     Route: 065
  35. IRON SULFATE [Concomitant]
     Active Substance: FERROUS SULFATE ANHYDROUS
     Route: 065
  36. VOLTAREN [Concomitant]
     Active Substance: DICLOFENAC SODIUM
     Route: 065
  37. NORCO [Concomitant]
     Active Substance: ACETAMINOPHEN\HYDROCODONE BITARTRATE
     Route: 065
  38. TORSEMIDE. [Concomitant]
     Active Substance: TORSEMIDE
     Route: 065
  39. TAMSULOSIN [Concomitant]
     Active Substance: TAMSULOSIN
     Route: 065
  40. REGLAN [Concomitant]
     Active Substance: METOCLOPRAMIDE HYDROCHLORIDE
     Route: 065
  41. ZOFRAN [Concomitant]
     Active Substance: ONDANSETRON HYDROCHLORIDE
     Route: 065
  42. HYDRALAZINE [Concomitant]
     Active Substance: HYDRALAZINE HYDROCHLORIDE
     Route: 065
  43. FLORASTOR /00079701/ [Concomitant]
     Route: 065

REACTIONS (31)
  - Pneumonia [Unknown]
  - Red cell distribution width increased [Unknown]
  - Platelet count decreased [Unknown]
  - Back pain [Recovered/Resolved]
  - Anaemia [Unknown]
  - Oedema peripheral [Unknown]
  - Weight decreased [Unknown]
  - Carbon dioxide decreased [Recovered/Resolved]
  - Basophil count increased [Recovered/Resolved]
  - Hyponatraemia [Unknown]
  - Haematocrit decreased [Unknown]
  - Pancytopenia [Unknown]
  - Hyperbilirubinaemia [Unknown]
  - Mean cell haemoglobin decreased [Recovered/Resolved]
  - Neutrophil count decreased [Unknown]
  - Blood albumin decreased [Recovered/Resolved]
  - Blood alkaline phosphatase increased [Recovered/Resolved]
  - Dysplasia [Unknown]
  - Microcytosis [Unknown]
  - Blood glucose increased [Recovered/Resolved]
  - Red blood cell count increased [Unknown]
  - Light chain analysis increased [Unknown]
  - Blood pressure decreased [Unknown]
  - Haemoglobin decreased [Unknown]
  - Mean cell volume decreased [Recovered/Resolved]
  - Protein total decreased [Recovered/Resolved]
  - Blood urea increased [Unknown]
  - Cardioactive drug level decreased [Unknown]
  - White blood cell count decreased [Unknown]
  - Monocyte percentage increased [Unknown]
  - Lung infiltration [Unknown]

NARRATIVE: CASE EVENT DATE: 20200321
